FAERS Safety Report 17099117 (Version 1)
Quarter: 2019Q4

REPORT INFORMATION
  Report Type: Spontaneous
  Country: FR (occurrence: FR)
  Receive Date: 20191202
  Receipt Date: 20191202
  Transmission Date: 20200122
  Serious: Yes (Hospitalization, Other)
  Sender: FDA-Public Use
  Company Number: FR-009507513-1911FRA011312

PATIENT
  Age: 53 Year
  Sex: Female

DRUGS (1)
  1. PEMBROLIZUMAB. [Suspect]
     Active Substance: PEMBROLIZUMAB
     Indication: NON-SMALL CELL LUNG CANCER METASTATIC
     Dosage: UNK, CYCLICAL

REACTIONS (3)
  - Pulmonary toxicity [Recovered/Resolved]
  - Fulminant type 1 diabetes mellitus [Unknown]
  - Diabetic ketoacidosis [Recovered/Resolved]
